FAERS Safety Report 5583966-6 (Version None)
Quarter: 2008Q1

REPORT INFORMATION
  Report Type: 
  Country: None (occurrence: None)
  Receive Date: 20080108
  Receipt Date: 20071113
  Transmission Date: 20080703
  Serious: Yes (Death)
  Sender: FDA-Public Use
  Company Number: US-PURDUE-USA_2007_0030641

PATIENT
  Age: 44 Year
  Sex: Male

DRUGS (1)
  1. OXYCONTIN [Suspect]
     Indication: ARTHRALGIA
     Dates: start: 20001127, end: 20001127

REACTIONS (4)
  - ARTERIOSCLEROSIS [None]
  - MOOD SWINGS [None]
  - TREMOR [None]
  - VOMITING [None]
